FAERS Safety Report 6000276-3 (Version None)
Quarter: 2008Q4

REPORT INFORMATION
  Report Type: 
  Country: None (occurrence: None)
  Receive Date: 20081211
  Receipt Date: 20081127
  Transmission Date: 20090506
  Serious: Yes (Hospitalization)
  Sender: FDA-Public Use
  Company Number: 2008S1018743

PATIENT
  Age: 59 Year
  Sex: Male

DRUGS (5)
  1. NEBIVOLOL HCL [Suspect]
     Indication: HYPERTENSION
     Dosage: 10 MG; TABLET; ORAL; DAILY
     Route: 048
     Dates: start: 20080801, end: 20080901
  2. METFORMINE (METFORMIN HYDROCHLORODE) [Suspect]
     Indication: TYPE 2 DIABETES MELLITUS
     Dosage: 3000 MG; TABLET; ORAL; DAILY
     Route: 048
     Dates: start: 20060101
  3. DIAMICRON (GLICLAZIDE) [Suspect]
     Indication: TYPE 2 DIABETES MELLITUS
     Dosage: TABLET, ORAL
     Route: 048
     Dates: start: 20060101
  4. MICARDIS [Suspect]
     Indication: DRUG USE FOR UNKNOWN INDICATION
     Dosage: TABLET; ORAL
     Route: 048
  5. ATORVASTATIN CALCIUM [Suspect]
     Indication: DYSLIPIDAEMIA

REACTIONS (1)
  - HAEMOLYTIC ANAEMIA [None]
